FAERS Safety Report 13380565 (Version 1)
Quarter: 2017Q1

REPORT INFORMATION
  Report Type: Spontaneous
  Country: FR (occurrence: FR)
  Receive Date: 20170329
  Receipt Date: 20170329
  Transmission Date: 20170429
  Serious: Yes (Hospitalization)
  Sender: FDA-Public Use
  Company Number: FR-ACCORD-049398

PATIENT
  Age: 66 Year
  Sex: Male

DRUGS (10)
  1. ONDANSETRON [Concomitant]
     Active Substance: ONDANSETRON
     Route: 051
     Dates: start: 20170117, end: 20170117
  2. IRBESARTAN. [Concomitant]
     Active Substance: IRBESARTAN
     Dosage: TWICE DAILY.
  3. ATORVASTATIN [Concomitant]
     Active Substance: ATORVASTATIN
     Dosage: DAILY
  4. SKENAN [Suspect]
     Active Substance: MORPHINE SULFATE
     Indication: PAIN
     Dosage: STRENGTH: 60 MG.?PROLONGED RELEASE MICROGRANULES?ONE DOSE FORM TWICE DAILY.
     Route: 048
     Dates: end: 20170125
  5. KARDEGIC [Concomitant]
     Active Substance: ASPIRIN LYSINE
     Dosage: STRENGTH: 75MG?POWDER FOR ORAL SOLUTION IN SACHET-DOSE?ONE DOSE FORM ONCE DAILY.
  6. METHYLPREDNISOLONE. [Suspect]
     Active Substance: METHYLPREDNISOLONE
     Indication: ADJUVANT THERAPY
     Route: 051
     Dates: start: 20170117, end: 20170117
  7. PREDNISOLONE. [Suspect]
     Active Substance: PREDNISOLONE
     Indication: ADJUVANT THERAPY
     Dosage: FROM DAY 1 TO DAY 3 OF CHEMOTHERAPY
     Route: 048
     Dates: start: 20170116, end: 20170119
  8. LERCAN [Concomitant]
     Active Substance: LERCANIDIPINE
     Dosage: STRENGTH: 20 MG?ONE DOSE FORM DAILY.
  9. DOCETAXEL ACCORD [Suspect]
     Active Substance: DOCETAXEL
     Indication: LUNG ADENOCARCINOMA METASTATIC
     Dosage: 160 MG/8 ML, ONCE PER CYCLE
     Route: 042
     Dates: start: 20170117, end: 20170117
  10. PREGABALIN. [Concomitant]
     Active Substance: PREGABALIN
     Dosage: TWICE DAILY.

REACTIONS (4)
  - Peritonitis [Recovered/Resolved with Sequelae]
  - Small intestinal obstruction [Recovered/Resolved with Sequelae]
  - Large intestine perforation [Recovered/Resolved with Sequelae]
  - Pneumoperitoneum [Recovered/Resolved with Sequelae]

NARRATIVE: CASE EVENT DATE: 20170118
